FAERS Safety Report 10179569 (Version 1)
Quarter: 2014Q2

REPORT INFORMATION
  Report Type: Spontaneous
  Country: US (occurrence: US)
  Receive Date: 20140519
  Receipt Date: 20140519
  Transmission Date: 20141212
  Serious: No
  Sender: FDA-Public Use
  Company Number: US-009507513-1405USA006963

PATIENT
  Age: 67 Year
  Sex: Female
  Weight: 88.44 kg

DRUGS (1)
  1. OXYTROL FOR WOMEN [Suspect]
     Indication: HYPERTONIC BLADDER
     Dosage: 1 DF, Q5D
     Route: 062
     Dates: start: 20140115, end: 20140302

REACTIONS (3)
  - Bowel movement irregularity [Recovered/Resolved]
  - Incorrect drug administration duration [Unknown]
  - Product quality issue [Unknown]
